FAERS Safety Report 17764605 (Version 1)
Quarter: 2020Q2

REPORT INFORMATION
  Report Type: Spontaneous
  Country: FR (occurrence: FR)
  Receive Date: 20200511
  Receipt Date: 20200511
  Transmission Date: 20200714
  Serious: Yes (Death, Other)
  Sender: FDA-Public Use
  Company Number: FR-SA-2020SA118640

PATIENT
  Age: 84 Year
  Sex: Female
  Weight: 90 kg

DRUGS (1)
  1. LOVENOX [Suspect]
     Active Substance: ENOXAPARIN SODIUM
     Indication: ATRIAL FIBRILLATION
     Dosage: 8000 IU, QD
     Route: 058
     Dates: start: 20200317, end: 20200322

REACTIONS (5)
  - Venous haemorrhage [Fatal]
  - Hypotension [Fatal]
  - Hyperkalaemia [Fatal]
  - Shock haemorrhagic [Fatal]
  - Acute kidney injury [Fatal]

NARRATIVE: CASE EVENT DATE: 20200322
